FAERS Safety Report 10183186 (Version 2)
Quarter: 2014Q2

REPORT INFORMATION
  Report Type: Spontaneous
  Country: US (occurrence: US)
  Receive Date: 20140520
  Receipt Date: 20140605
  Transmission Date: 20141212
  Serious: No
  Sender: FDA-Public Use
  Company Number: US-BAYER-2014-073567

PATIENT
  Sex: Female

DRUGS (1)
  1. CIPRO [Suspect]
     Indication: PRODUCT USED FOR UNKNOWN INDICATION
     Dosage: UNK
     Dates: start: 20140512

REACTIONS (2)
  - Dyspepsia [Recovered/Resolved]
  - Fear [None]
